FAERS Safety Report 7109198-8 (Version None)
Quarter: 2010Q4

REPORT INFORMATION
  Report Type: 
  Country: None (occurrence: None)
  Receive Date: 20101117
  Receipt Date: 20101104
  Transmission Date: 20110411
  Serious: Yes (Other)
  Sender: FDA-Public Use
  Company Number: JP-ELI_LILLY_AND_COMPANY-JP201010005401

PATIENT
  Age: 35 Year
  Sex: Male

DRUGS (4)
  1. CYMBALTA [Suspect]
     Indication: DEPRESSION
     Dosage: 60 MG, DAILY (1/D)
     Route: 048
     Dates: start: 20100514, end: 20100927
  2. LIMAS [Concomitant]
     Dosage: 400 MG, DAILY (1/D)
     Route: 048
     Dates: start: 20090904, end: 20100927
  3. ABILIFY [Concomitant]
     Dosage: 1.5 MG, DAILY (1/D)
     Route: 048
     Dates: start: 20080711, end: 20100927
  4. RESLIN [Concomitant]
     Dosage: 75 MG, DAILY (1/D)
     Route: 048
     Dates: start: 20080905, end: 20100927

REACTIONS (1)
  - HEPATIC FUNCTION ABNORMAL [None]
